FAERS Safety Report 8084314 (Version 4)
Quarter: 2012Q4

REPORT INFORMATION
  Report Type: 
  Country: US (occurrence: US)
  Receive Date: 20110810
  Receipt Date: 20121019
  Transmission Date: 20130627
  Serious: Yes (Hospitalization)
  Sender: FDA-Public Use
  Company Number: US-GLAXOSMITHKLINE-A0929977A

PATIENT
  Age: 55 Year
  Sex: Male
  Weight: 124.5 kg

DRUGS (1)
  1. AVANDIA [Suspect]
     Indication: DIABETES MELLITUS
     Dosage: 4MG Per day
     Route: 048
     Dates: start: 200604, end: 200703

REACTIONS (4)
  - Heart rate irregular [Not Recovered/Not Resolved]
  - Cardiac failure congestive [Unknown]
  - Ejection fraction decreased [Unknown]
  - Cardiomyopathy [Unknown]
